FAERS Safety Report 6213550-2 (Version None)
Quarter: 2009Q2

REPORT INFORMATION
  Report Type: 
  Country: None (occurrence: None)
  Receive Date: 20090603
  Receipt Date: 20090526
  Transmission Date: 20091009
  Serious: Yes (Other)
  Sender: FDA-Public Use
  Company Number: FR-JNJFOC-20090505773

PATIENT
  Sex: Female

DRUGS (6)
  1. RISPERDAL [Suspect]
     Indication: DELIRIUM
     Route: 048
  2. CORDARONE [Suspect]
     Indication: DRUG USE FOR UNKNOWN INDICATION
     Route: 065
  3. CORVASAL [Suspect]
     Indication: DRUG USE FOR UNKNOWN INDICATION
     Route: 048
  4. XANAX [Concomitant]
     Route: 048
  5. CARDENSIEL [Concomitant]
     Route: 048
  6. PRAVASTATIN [Concomitant]
     Route: 048

REACTIONS (4)
  - ATRIAL FIBRILLATION [None]
  - BRADYCARDIA [None]
  - CHEST PAIN [None]
  - ELECTROCARDIOGRAM QT PROLONGED [None]
